FAERS Safety Report 11919608 (Version 1)
Quarter: 2016Q1

REPORT INFORMATION
  Report Type: Spontaneous
  Country: US (occurrence: None)
  Receive Date: 20160114
  Receipt Date: 20160114
  Transmission Date: 20160526
  Serious: No
  Sender: FDA-Public Use
  Company Number: None

PATIENT
  Sex: Female

DRUGS (2)
  1. TEMOZOLOMIDE. [Suspect]
     Active Substance: TEMOZOLOMIDE
     Dosage: 180MG DAILY FOR 5 DAYS, EVERY 28 DAYS BY MOUTH
     Route: 048
     Dates: start: 20150529
  2. TEMOZOLOMIDE. [Suspect]
     Active Substance: TEMOZOLOMIDE
     Dosage: 250MG DAILY FOR 5 DAYS, EVERY 28 DAYS BY MOUTH
     Route: 048
     Dates: start: 20150529

REACTIONS (2)
  - Hypothermia [None]
  - Chills [None]
